FAERS Safety Report 8274886-7 (Version None)
Quarter: 2012Q2

REPORT INFORMATION
  Report Type: 
  Country: None (occurrence: None)
  Receive Date: 20120411
  Receipt Date: 20120405
  Transmission Date: 20120825
  Serious: Yes (Death, Other)
  Sender: FDA-Public Use
  Company Number: IE-ASTRAZENECA-2012SE23214

PATIENT
  Age: 74 Year
  Sex: Male
  Weight: 103 kg

DRUGS (11)
  1. LIDOCAINE [Concomitant]
     Indication: PAIN
  2. XANAX [Concomitant]
     Indication: MOOD SWINGS
  3. PROSTEP [Suspect]
     Indication: PROSTATE CANCER
     Route: 065
     Dates: start: 20110901
  4. VALDOXAN [Concomitant]
     Indication: DEPRESSION
  5. VIMOVO [Concomitant]
     Indication: PAIN
     Route: 048
  6. XANAX [Concomitant]
     Indication: PAIN
  7. XANAX [Concomitant]
     Indication: DEPRESSED MOOD
  8. DURAGESIC-100 [Concomitant]
     Indication: ANALGESIC THERAPY
  9. CASODEX [Suspect]
     Indication: PROSTATE CANCER
     Route: 048
  10. NEXIUM [Concomitant]
     Route: 048
  11. BISOPROLOL FUMARATE [Concomitant]

REACTIONS (3)
  - MOOD SWINGS [None]
  - COMPLETED SUICIDE [None]
  - SUICIDAL IDEATION [None]
